FAERS Safety Report 7636092-6 (Version None)
Quarter: 2011Q3

REPORT INFORMATION
  Report Type: 
  Country: None (occurrence: None)
  Receive Date: 20110726
  Receipt Date: 20110720
  Transmission Date: 20111222
  Serious: Yes (Other)
  Sender: FDA-Public Use
  Company Number: US-ROCHE-791125

PATIENT
  Sex: Female

DRUGS (1)
  1. ACCUTANE [Suspect]
     Route: 065
     Dates: start: 19980501, end: 19981101

REACTIONS (1)
  - DIVERTICULITIS [None]
